FAERS Safety Report 21401593 (Version 1)
Quarter: 2022Q4

REPORT INFORMATION
  Report Type: Spontaneous
  Country: US (occurrence: US)
  Receive Date: 20221003
  Receipt Date: 20221003
  Transmission Date: 20230113
  Serious: Yes (Other)
  Sender: FDA-Public Use
  Company Number: US-ABBVIE-4135449

PATIENT
  Sex: Male

DRUGS (1)
  1. SKYRIZI [Suspect]
     Active Substance: RISANKIZUMAB-RZAA
     Indication: Product used for unknown indication
     Route: 058
     Dates: start: 20220222

REACTIONS (8)
  - Loss of consciousness [Unknown]
  - Skin swelling [Unknown]
  - Rash [Unknown]
  - Skin reaction [Unknown]
  - Palpitations [Unknown]
  - Respiratory disorder [Unknown]
  - Syncope [Unknown]
  - Urticaria [Unknown]

NARRATIVE: CASE EVENT DATE: 20220101
